FAERS Safety Report 7589238-2 (Version None)
Quarter: 2011Q3

REPORT INFORMATION
  Report Type: 
  Country: None (occurrence: None)
  Receive Date: 20110705
  Receipt Date: 20110623
  Transmission Date: 20111222
  Serious: No
  Sender: FDA-Public Use
  Company Number: US-JNJFOC-20110611545

PATIENT
  Age: 53 Year
  Sex: Male

DRUGS (7)
  1. INVEGA SUSTENNA [Suspect]
     Route: 030
     Dates: start: 20110611
  2. LOVASTATIN [Concomitant]
     Route: 065
  3. INVEGA SUSTENNA [Suspect]
     Indication: SCHIZOPHRENIA
     Route: 030
  4. ABILIFY [Concomitant]
     Route: 065
  5. KLONOPIN [Concomitant]
     Route: 065
  6. NICOTINE [Concomitant]
     Route: 062
  7. QUETIAPINE [Concomitant]
     Route: 065

REACTIONS (1)
  - DRUG DOSE OMISSION [None]
